FAERS Safety Report 23547412 (Version 3)
Quarter: 2024Q2

REPORT INFORMATION
  Report Type: Spontaneous
  Country: ES (occurrence: ES)
  Receive Date: 20240221
  Receipt Date: 20240429
  Transmission Date: 20240716
  Serious: Yes (Disabling)
  Sender: FDA-Public Use
  Company Number: ES-JNJFOC-20240167329

PATIENT
  Age: 70 Year
  Sex: Female
  Weight: 106 kg

DRUGS (16)
  1. TALQUETAMAB [Suspect]
     Active Substance: TALQUETAMAB
     Indication: Product used for unknown indication
     Dosage: 1 TALQUETAMAB; FIRST DOSE
     Route: 058
     Dates: start: 20230327
  2. TALQUETAMAB [Suspect]
     Active Substance: TALQUETAMAB
     Dosage: 2 TALQUETAMAB; SECOND DOSE
     Route: 058
     Dates: start: 20230329
  3. TALQUETAMAB [Suspect]
     Active Substance: TALQUETAMAB
     Dosage: THIRD DOSE
     Route: 058
     Dates: start: 20230331
  4. TALQUETAMAB [Suspect]
     Active Substance: TALQUETAMAB
     Dosage: 1 IVIG; FOURTH DOSE (1ST TTO)
     Route: 058
     Dates: start: 20230411
  5. TALQUETAMAB [Suspect]
     Active Substance: TALQUETAMAB
     Dosage: 1 TALQUETAMAB (FOURTH DOSE)
     Route: 058
     Dates: start: 20230424
  6. TALQUETAMAB [Suspect]
     Active Substance: TALQUETAMAB
     Dosage: 1 TALQUETAMAB (FOURTH DOSE)
     Route: 058
     Dates: start: 20230508
  7. TALQUETAMAB [Suspect]
     Active Substance: TALQUETAMAB
     Dosage: 1 TALQUETAMAB (FOURTH DOSE)
     Route: 058
     Dates: start: 20230522
  8. TALQUETAMAB [Suspect]
     Active Substance: TALQUETAMAB
     Dosage: 1 TALQUETAMAB (FOURTH DOSE)
     Route: 058
     Dates: start: 20230605
  9. TALQUETAMAB [Suspect]
     Active Substance: TALQUETAMAB
     Dosage: 1 TALQUETAMAB (FOURTH DOSE)
     Route: 058
     Dates: start: 20230619
  10. TALQUETAMAB [Suspect]
     Active Substance: TALQUETAMAB
     Dosage: 1 TALQUETAMAB (FOURTH DOSE)
     Route: 058
     Dates: start: 20230704
  11. TALQUETAMAB [Suspect]
     Active Substance: TALQUETAMAB
     Dosage: 1 TALQUETAMAB (FOURTH DOSE)
     Route: 058
     Dates: start: 20230725
  12. TALQUETAMAB [Suspect]
     Active Substance: TALQUETAMAB
     Dosage: 1 TALQUETAMAB (FOURTH DOSE)
     Route: 058
     Dates: start: 20230808
  13. TALQUETAMAB [Suspect]
     Active Substance: TALQUETAMAB
     Dosage: 1 TALQUETAMAB (FOURTH DOSE)
     Route: 058
     Dates: start: 20230822
  14. TALQUETAMAB [Suspect]
     Active Substance: TALQUETAMAB
     Dosage: 1 TALQUETAMAB (FOURTH DOSE)
     Route: 058
     Dates: start: 20230905
  15. TALQUETAMAB [Suspect]
     Active Substance: TALQUETAMAB
     Dosage: 1 TALQUETAMAB (FOURTH DOSE)
     Route: 058
     Dates: start: 20230919
  16. TALQUETAMAB [Suspect]
     Active Substance: TALQUETAMAB
     Route: 058

REACTIONS (7)
  - Fall [Recovered/Resolved]
  - Asthenia [Recovered/Resolved]
  - Pruritus [Recovered/Resolved]
  - Erythema [Recovered/Resolved]
  - COVID-19 [Recovered/Resolved]
  - Respiratory tract infection [Recovered/Resolved]
  - Product dose omission issue [Unknown]

NARRATIVE: CASE EVENT DATE: 20230905
